FAERS Safety Report 15698107 (Version 2)
Quarter: 2019Q3

REPORT INFORMATION
  Report Type: Spontaneous
  Country: CA (occurrence: CA)
  Receive Date: 20181207
  Receipt Date: 20190801
  Transmission Date: 20191004
  Serious: Yes (Life-Threatening, Hospitalization, Other)
  Sender: FDA-Public Use
  Company Number: CA-TEVA-2018-CA-984735

PATIENT
  Age: 10 Year
  Sex: Male

DRUGS (7)
  1. CLONIDINE. [Suspect]
     Active Substance: CLONIDINE
     Indication: DYSTONIA
     Route: 048
  2. KETAMINE [Suspect]
     Active Substance: KETAMINE
     Indication: DYSTONIA
     Route: 065
  3. CHLORPROMAZINE. [Suspect]
     Active Substance: CHLORPROMAZINE
     Indication: HYPERKINESIA
     Route: 065
  4. LORAZEPAM. [Suspect]
     Active Substance: LORAZEPAM
     Indication: DYSTONIA
     Route: 048
  5. APO-MIDAZOLAM INJECTABLE 1 MG/ML [Suspect]
     Active Substance: MIDAZOLAM HYDROCHLORIDE
     Indication: DYSTONIA
     Route: 040
  6. CHLORAL HYDRATE [Suspect]
     Active Substance: CHLORAL HYDRATE
     Indication: DYSTONIA
     Route: 048
  7. DEXMEDETOMIDINE. [Concomitant]
     Active Substance: DEXMEDETOMIDINE
     Indication: DYSTONIA
     Route: 041

REACTIONS (6)
  - Condition aggravated [Recovered/Resolved]
  - Drug intolerance [Unknown]
  - Dystonia [Recovered/Resolved]
  - Dystonia [Unknown]
  - Treatment failure [Unknown]
  - Treatment failure [Recovered/Resolved]
